FAERS Safety Report 5320318-8 (Version None)
Quarter: 2007Q2

REPORT INFORMATION
  Report Type: 
  Country: None (occurrence: None)
  Receive Date: 20070509
  Receipt Date: 20070507
  Transmission Date: 20071010
  Serious: Yes (Other)
  Sender: FDA-Public Use
  Company Number: US-ASTRAZENECA-2007UW09723

PATIENT
  Sex: Female

DRUGS (3)
  1. ARIMIDEX [Suspect]
     Indication: BREAST CANCER
     Route: 048
     Dates: start: 20040101
  2. ACTONEL [Concomitant]
  3. LIPITOR [Concomitant]

REACTIONS (2)
  - BONE DISORDER [None]
  - INTERVERTEBRAL DISC DEGENERATION [None]
